FAERS Safety Report 4589962-X (Version None)
Quarter: 2005Q1

REPORT INFORMATION
  Report Type: 
  Country: None (occurrence: None)
  Receive Date: 20050125
  Receipt Date: 20040917
  Transmission Date: 20050727
  Serious: No
  Sender: FDA-Public Use
  Company Number: USA040772093

PATIENT
  Age: 62 Year
  Sex: Female
  Weight: 82 kg

DRUGS (6)
  1. FORTEO [Suspect]
     Indication: OSTEOPOROSIS
     Dosage: 20 UG/1 DAY
     Dates: start: 20040617
  2. DARVOCET-N 100 [Concomitant]
  3. NEXIUM [Concomitant]
  4. CELEBREX [Concomitant]
  5. PLAQUENIL [Concomitant]
  6. PLAVIX [Concomitant]

REACTIONS (1)
  - GASTROENTERITIS BACTERIAL [None]
